FAERS Safety Report 23238843 (Version 3)
Quarter: 2024Q2

REPORT INFORMATION
  Report Type: Report from Study
  Country: CA (occurrence: CA)
  Receive Date: 20231129
  Receipt Date: 20240503
  Transmission Date: 20240716
  Serious: Yes (Other)
  Sender: FDA-Public Use
  Company Number: CA-ABBVIE-5510452

PATIENT
  Age: 55 Year
  Sex: Male

DRUGS (1)
  1. RINVOQ [Suspect]
     Active Substance: UPADACITINIB
     Indication: Dermatitis atopic
     Dosage: FORM STRENGTH: 30 MILLIGRAM
     Route: 048
     Dates: start: 20220916, end: 20240423

REACTIONS (4)
  - Intestinal anastomosis [Unknown]
  - Rash [Unknown]
  - Hepatic enzyme increased [Unknown]
  - Medical device implantation [Unknown]

NARRATIVE: CASE EVENT DATE: 20240401
